FAERS Safety Report 12292359 (Version 3)
Quarter: 2017Q1

REPORT INFORMATION
  Report Type: Report from Study
  Country: US (occurrence: US)
  Receive Date: 20160421
  Receipt Date: 20170124
  Transmission Date: 20170428
  Serious: No
  Sender: FDA-Public Use
  Company Number: US-AMGEN-USASL2016012423

PATIENT
  Age: 68 Year
  Sex: Female

DRUGS (4)
  1. XARELTO [Concomitant]
     Active Substance: RIVAROXABAN
  2. REPATHA [Suspect]
     Active Substance: EVOLOCUMAB
     Dosage: UNK, UNK
     Route: 065
     Dates: start: 20160201
  3. TYLENOL [Concomitant]
     Active Substance: ACETAMINOPHEN
  4. REPATHA [Suspect]
     Active Substance: EVOLOCUMAB
     Indication: HYPERCHOLESTEROLAEMIA
     Dosage: 140 MG, Q2WK
     Route: 065
     Dates: start: 20160201

REACTIONS (8)
  - Wrong technique in product usage process [Unknown]
  - Alopecia [Unknown]
  - Headache [Unknown]
  - Contusion [Unknown]
  - Injection site bruising [Unknown]
  - Incorrect product storage [Unknown]
  - Injection site pain [Recovered/Resolved]
  - Vitamin D deficiency [Unknown]

NARRATIVE: CASE EVENT DATE: 20160201
